FAERS Safety Report 9374330 (Version 2)
Quarter: 2013Q3

REPORT INFORMATION
  Report Type: Spontaneous
  Country: US (occurrence: US)
  Receive Date: 20130628
  Receipt Date: 20130724
  Transmission Date: 20140515
  Serious: No
  Sender: FDA-Public Use
  Company Number: US-PFIZER INC-2013190435

PATIENT
  Sex: Female

DRUGS (2)
  1. LYRICA [Suspect]
     Indication: HERPES ZOSTER
     Dosage: 1 DF, 1X/DAY
     Dates: start: 201306
  2. LYRICA [Suspect]
     Indication: PAIN

REACTIONS (1)
  - Incorrect dose administered [Unknown]
